FAERS Safety Report 6138209-1 (Version None)
Quarter: 2009Q1

REPORT INFORMATION
  Report Type: 
  Country: None (occurrence: None)
  Receive Date: 20090331
  Receipt Date: 20090324
  Transmission Date: 20090719
  Serious: Yes (Death, Hospitalization)
  Sender: FDA-Public Use
  Company Number: A0769777A

PATIENT
  Age: 63 Year
  Sex: Male

DRUGS (7)
  1. ADVAIR HFA [Suspect]
     Indication: ASTHMA
     Dosage: 1PUFF TWICE PER DAY
     Route: 055
  2. ALBUTEROL [Suspect]
     Indication: EMPHYSEMA
     Dosage: .83PCT PER DAY
     Route: 055
     Dates: start: 20071001
  3. ALTACE [Suspect]
     Indication: HYPERTENSION
     Dosage: 10MG PER DAY
     Route: 048
     Dates: start: 20080101
  4. COMBIVENT [Suspect]
     Indication: EMPHYSEMA
     Dosage: 2PUFF FOUR TIMES PER DAY
     Route: 055
     Dates: start: 20071001
  5. CRESTOR [Suspect]
     Dosage: 20MG PER DAY
     Route: 048
     Dates: start: 20080101
  6. SINGULAIR [Suspect]
     Indication: ASTHMA
     Dosage: 10MG PER DAY
     Route: 048
     Dates: start: 20080101
  7. SPIRIVA [Suspect]
     Indication: ASTHMA
     Dosage: 18MCG PER DAY
     Route: 055
     Dates: start: 20071001

REACTIONS (2)
  - ADVERSE EVENT [None]
  - DEATH [None]
